FAERS Safety Report 4650634-4 (Version None)
Quarter: 2005Q2

REPORT INFORMATION
  Report Type: 
  Country: None (occurrence: None)
  Receive Date: 20050429
  Receipt Date: 20050429
  Transmission Date: 20051028
  Serious: Yes (Other)
  Sender: FDA-Public Use
  Company Number: None

PATIENT
  Sex: Male
  Weight: 72.5755 kg

DRUGS (3)
  1. FENTANYL [Suspect]
     Indication: INTERVERTEBRAL DISC DISORDER
     Dosage: 25 MCG 1-2 Q 48H
     Dates: start: 20020417
  2. VICOPROFEN [Concomitant]
  3. AMBIEN [Concomitant]

REACTIONS (5)
  - DIARRHOEA [None]
  - HEADACHE [None]
  - NAUSEA [None]
  - RESTLESSNESS [None]
  - VOMITING [None]
